FAERS Safety Report 8162214-7 (Version None)
Quarter: 2012Q1

REPORT INFORMATION
  Report Type: 
  Country: None (occurrence: None)
  Receive Date: 20120224
  Receipt Date: 20111006
  Transmission Date: 20120608
  Serious: No
  Sender: FDA-Public Use
  Company Number: US-BRISTOL-MYERS SQUIBB COMPANY-16118358

PATIENT
  Sex: Female

DRUGS (3)
  1. LANTUS [Suspect]
     Dosage: INJECTION SOLN STRENGTH:100 IU/ML
     Route: 058
  2. METFORMIN HCL [Suspect]
  3. BYETTA [Suspect]

REACTIONS (3)
  - MUSCLE SPASMS [None]
  - GAIT DISTURBANCE [None]
  - VISION BLURRED [None]
